FAERS Safety Report 8739161 (Version 2)
Quarter: 2012Q4

REPORT INFORMATION
  Report Type: 
  Country: US (occurrence: US)
  Receive Date: 20120823
  Receipt Date: 20121206
  Transmission Date: 20130627
  Serious: Yes (Other)
  Sender: FDA-Public Use
  Company Number: US-ELI_LILLY_AND_COMPANY-US201208004420

PATIENT
  Age: 65 Year
  Sex: Female

DRUGS (2)
  1. CYMBALTA [Suspect]
     Indication: OSTEOARTHRITIS
     Dosage: 30 mg, unknown
     Route: 065
  2. CYMBALTA [Suspect]
     Dosage: 60 mg, unknown
     Route: 065

REACTIONS (5)
  - Skin exfoliation [Unknown]
  - Rash pruritic [Unknown]
  - Skin warm [Unknown]
  - Intentional drug misuse [Unknown]
  - Cellulitis [Unknown]
